FAERS Safety Report 4536675-6 (Version None)
Quarter: 2004Q4

REPORT INFORMATION
  Report Type: 
  Country: None (occurrence: None)
  Receive Date: 20041222
  Receipt Date: 20041222
  Transmission Date: 20050328
  Serious: Yes (Hospitalization)
  Sender: FDA-Public Use
  Company Number: None

PATIENT
  Age: 23 Year
  Sex: Male

DRUGS (1)
  1. ARALEN HCL [Suspect]
     Indication: MALARIA PROPHYLAXIS
     Dosage: ORAL ; 250.0 MILLIGRAM
     Route: 048

REACTIONS (3)
  - BLOOD CREATININE INCREASED [None]
  - FLANK PAIN [None]
  - RHABDOMYOLYSIS [None]
